FAERS Safety Report 9735524 (Version 2)
Quarter: 2015Q3

REPORT INFORMATION
  Report Type: Spontaneous
  Country: US (occurrence: US)
  Receive Date: 20131206
  Receipt Date: 20150804
  Transmission Date: 20151125
  Serious: No
  Sender: FDA-Public Use
  Company Number: US-GILEAD-2009-0023463

PATIENT
  Age: 54 Year
  Sex: Female
  Weight: 62.6 kg

DRUGS (12)
  1. LETAIRIS [Suspect]
     Active Substance: AMBRISENTAN
     Indication: PULMONARY ARTERIAL HYPERTENSION
     Route: 048
     Dates: start: 20080521
  2. POTASSIUM CHLORIDE. [Concomitant]
     Active Substance: POTASSIUM CHLORIDE
  3. IMODIUM [Concomitant]
     Active Substance: LOPERAMIDE HYDROCHLORIDE
  4. VIAGRA [Concomitant]
     Active Substance: SILDENAFIL CITRATE
  5. LASIX [Concomitant]
     Active Substance: FUROSEMIDE
  6. PARACETAMOL/HYDROCODONE BITARTRATE [Concomitant]
  7. VENTAVIS [Concomitant]
     Active Substance: ILOPROST
  8. DIGOXIN. [Concomitant]
     Active Substance: DIGOXIN
  9. EFFEXOR XR [Concomitant]
     Active Substance: VENLAFAXINE HYDROCHLORIDE
  10. LORAZEPAM. [Concomitant]
     Active Substance: LORAZEPAM
  11. TYLENOL [Concomitant]
     Active Substance: ACETAMINOPHEN
  12. PROTONIX [Concomitant]
     Active Substance: PANTOPRAZOLE SODIUM

REACTIONS (1)
  - Fatigue [Unknown]
